FAERS Safety Report 23299714 (Version 1)
Quarter: 2023Q4

REPORT INFORMATION
  Report Type: Spontaneous
  Country: US (occurrence: US)
  Receive Date: 20231215
  Receipt Date: 20231215
  Transmission Date: 20240110
  Serious: Yes (Other)
  Sender: FDA-Public Use
  Company Number: US-ABBVIE-5526558

PATIENT
  Age: 71 Year
  Sex: Female

DRUGS (3)
  1. REFRESH CELLUVISC [Suspect]
     Active Substance: CARBOXYMETHYLCELLULOSE SODIUM
     Indication: Dry eye
     Dosage: 10MG/ML
     Route: 047
     Dates: start: 2003
  2. REFRESH CELLUVISC [Suspect]
     Active Substance: CARBOXYMETHYLCELLULOSE SODIUM
     Indication: Dry eye
     Dosage: 10MG/ML
     Route: 047
  3. LASTACAFT [Suspect]
     Active Substance: ALCAFTADINE
     Indication: Dry eye
     Dosage: 0.25 PERCENT
     Route: 047
     Dates: start: 20231205, end: 20231205

REACTIONS (9)
  - Cataract [Recovered/Resolved]
  - Seasonal allergy [Unknown]
  - Allergic sinusitis [Not Recovered/Not Resolved]
  - Burning sensation [Not Recovered/Not Resolved]
  - Dry eye [Not Recovered/Not Resolved]
  - Eye pain [Not Recovered/Not Resolved]
  - Nasal disorder [Unknown]
  - Bronchitis [Unknown]
  - Sinusitis [Unknown]

NARRATIVE: CASE EVENT DATE: 20230601
